FAERS Safety Report 5181398-6 (Version None)
Quarter: 2006Q4

REPORT INFORMATION
  Report Type: 
  Country: None (occurrence: None)
  Receive Date: 20061220
  Receipt Date: 20060106
  Transmission Date: 20070319
  Serious: No
  Sender: FDA-Public Use
  Company Number: US-GLAXOSMITHKLINE-A0588065A

PATIENT
  Sex: Female

DRUGS (1)
  1. COMMIT [Suspect]
     Dosage: 2MG SEE DOSAGE TEXT
     Dates: start: 20060105, end: 20060105

REACTIONS (2)
  - DRUG ADMINISTRATION ERROR [None]
  - PHARYNGOLARYNGEAL PAIN [None]
